FAERS Safety Report 8478944-3 (Version None)
Quarter: 2012Q2

REPORT INFORMATION
  Report Type: 
  Country: None (occurrence: None)
  Receive Date: 20120629
  Receipt Date: 20120615
  Transmission Date: 20120825
  Serious: Yes (Hospitalization)
  Sender: FDA-Public Use
  Company Number: JP-ROCHE-1070918

PATIENT
  Sex: Female
  Weight: 44 kg

DRUGS (8)
  1. SODIUM FERROUS CITRATE [Concomitant]
     Indication: IRON DEFICIENCY ANAEMIA
     Route: 065
     Dates: start: 20090901
  2. METHOTREXATE [Concomitant]
     Route: 048
     Dates: start: 20110615, end: 20110810
  3. METHOTREXATE [Concomitant]
     Route: 048
     Dates: start: 20110811, end: 20111104
  4. METHOTREXATE [Concomitant]
     Indication: RHEUMATOID ARTHRITIS
     Route: 048
     Dates: start: 20090701, end: 20110614
  5. FOLIAMIN [Concomitant]
     Indication: RHEUMATOID ARTHRITIS
     Route: 065
     Dates: start: 20090701, end: 20120401
  6. ACTEMRA [Suspect]
     Indication: RHEUMATOID ARTHRITIS
     Route: 041
     Dates: start: 20111208, end: 20120328
  7. METHOTREXATE [Concomitant]
     Route: 048
     Dates: start: 20111115, end: 20120401
  8. PREDNISOLONE [Concomitant]
     Indication: RHEUMATOID ARTHRITIS
     Route: 065
     Dates: start: 20090901

REACTIONS (5)
  - SYSTEMIC LUPUS ERYTHEMATOSUS [None]
  - ARTHROPATHY [None]
  - RESPIRATORY FAILURE [None]
  - PERICARDITIS [None]
  - BULLOUS IMPETIGO [None]
